FAERS Safety Report 18682828 (Version 12)
Quarter: 2022Q1

REPORT INFORMATION
  Report Type: Report from Study
  Country: US (occurrence: US)
  Receive Date: 20201230
  Receipt Date: 20220225
  Transmission Date: 20220423
  Serious: Yes (Hospitalization, Other)
  Sender: FDA-Public Use
  Company Number: US-NOVARTISPH-NVSC2020US339632

PATIENT
  Age: 57 Year
  Sex: Male

DRUGS (5)
  1. ENTRESTO [Suspect]
     Active Substance: SACUBITRIL\VALSARTAN
     Indication: Cardiac failure
     Dosage: 1 DF, BID
     Route: 048
  2. ENTRESTO [Suspect]
     Active Substance: SACUBITRIL\VALSARTAN
     Dosage: UNK
     Route: 048
  3. ENTRESTO [Suspect]
     Active Substance: SACUBITRIL\VALSARTAN
     Dosage: 200 MG, BID (97/103MG)
     Route: 048
  4. SPIRONOLACTONE [Suspect]
     Active Substance: SPIRONOLACTONE
     Indication: Product used for unknown indication
     Dosage: UNK
     Route: 065
  5. ATORVASTATIN\FENOFIBRATE [Concomitant]
     Active Substance: ATORVASTATIN\FENOFIBRATE
     Indication: Product used for unknown indication
     Dosage: UNK
     Route: 065

REACTIONS (27)
  - Hypotension [Unknown]
  - Vision blurred [Unknown]
  - Loss of consciousness [Unknown]
  - Cardiac failure [Unknown]
  - Burns third degree [Unknown]
  - COVID-19 [Unknown]
  - Dyspnoea [Unknown]
  - Pain [Unknown]
  - Decreased appetite [Not Recovered/Not Resolved]
  - Speech disorder [Unknown]
  - Anxiety [Unknown]
  - Gastrooesophageal reflux disease [Unknown]
  - Depression [Recovered/Resolved]
  - Feeling abnormal [Unknown]
  - Back pain [Unknown]
  - Gait disturbance [Unknown]
  - Oxygen saturation decreased [Unknown]
  - Memory impairment [Unknown]
  - Pollakiuria [Unknown]
  - Fatigue [Unknown]
  - Weight decreased [Unknown]
  - Vomiting [Unknown]
  - Cough [Recovering/Resolving]
  - Weight increased [Unknown]
  - Malaise [Unknown]
  - Dizziness postural [Unknown]
  - Product dose omission issue [Unknown]

NARRATIVE: CASE EVENT DATE: 20200301
